FAERS Safety Report 9764547 (Version 1)
Quarter: 2013Q4

REPORT INFORMATION
  Report Type: Spontaneous
  Country: US (occurrence: US)
  Receive Date: 20131217
  Receipt Date: 20131217
  Transmission Date: 20140711
  Serious: No
  Sender: FDA-Public Use
  Company Number: US-009507513-1312USA004302

PATIENT
  Sex: Female
  Weight: 88.89 kg

DRUGS (1)
  1. IMPLANON [Suspect]
     Indication: CONTRACEPTION
     Dosage: UNK
     Route: 059
     Dates: start: 20120514, end: 20130722

REACTIONS (2)
  - Infertility female [Not Recovered/Not Resolved]
  - Amenorrhoea [Not Recovered/Not Resolved]
